FAERS Safety Report 23417976 (Version 1)
Quarter: 2024Q1

REPORT INFORMATION
  Report Type: Spontaneous
  Country: CA (occurrence: CA)
  Receive Date: 20240118
  Receipt Date: 20240118
  Transmission Date: 20240409
  Serious: Yes (Hospitalization)
  Sender: FDA-Public Use
  Company Number: CA-FreseniusKabi-FK202400936

PATIENT
  Age: 61 Year
  Sex: Female

DRUGS (1)
  1. IDACIO [Suspect]
     Active Substance: ADALIMUMAB-AACF
     Indication: Rheumatoid arthritis
     Dosage: FOA: SOLUTION SUBCUTANEOUS
     Route: 058

REACTIONS (2)
  - Intentional dose omission [Not Recovered/Not Resolved]
  - Pneumonia [Not Recovered/Not Resolved]
